FAERS Safety Report 8796742 (Version 1)
Quarter: 2012Q4

REPORT INFORMATION
  Report Type: 
  Country: US (occurrence: US)
  Receive Date: 20120919
  Receipt Date: 20120919
  Transmission Date: 20130627
  Serious: No
  Sender: FDA-Public Use
  Company Number: US-MYLANLABS-2012S1012281

PATIENT
  Age: 73 Year
  Sex: Female

DRUGS (2)
  1. NIFEDIPINE ER [Suspect]
     Indication: BLOOD PRESSURE INCREASED
     Route: 048
     Dates: end: 20120613
  2. DIOVAN [Concomitant]
     Indication: BLOOD PRESSURE INCREASED

REACTIONS (3)
  - Drug ineffective [Not Recovered/Not Resolved]
  - Blood pressure increased [Not Recovered/Not Resolved]
  - Medication residue [Not Recovered/Not Resolved]
